FAERS Safety Report 6401821-6 (Version None)
Quarter: 2009Q4

REPORT INFORMATION
  Report Type: 
  Country: None (occurrence: None)
  Receive Date: 20091013
  Receipt Date: 20091013
  Transmission Date: 20100525
  Serious: No
  Sender: FDA-Public Use
  Company Number: None

PATIENT
  Sex: Female

DRUGS (5)
  1. ABILIFY [Suspect]
     Indication: ANXIETY
     Dosage: 2 MG DAILY
     Dates: start: 20090914
  2. ABILIFY [Suspect]
     Indication: DEPRESSION
     Dosage: 2 MG DAILY
     Dates: start: 20090914
  3. LEXAPRO [Concomitant]
  4. ZOLPIDEM [Concomitant]
  5. ALPRAZOLAM [Concomitant]

REACTIONS (7)
  - ERYTHEMA [None]
  - EYELID OEDEMA [None]
  - FEELING HOT [None]
  - PAIN [None]
  - PRURITUS [None]
  - SWELLING [None]
  - URTICARIA [None]
